FAERS Safety Report 6275709-8 (Version None)
Quarter: 2009Q3

REPORT INFORMATION
  Report Type: 
  Country: None (occurrence: None)
  Receive Date: 20090721
  Receipt Date: 20090710
  Transmission Date: 20100115
  Serious: Yes (Other)
  Sender: FDA-Public Use
  Company Number: PHEH2009US07428

PATIENT
  Age: 78 Year
  Sex: Female

DRUGS (1)
  1. GLEEVEC [Suspect]
     Indication: MALIGNANT SOFT TISSUE NEOPLASM
     Dosage: 400 MG, QD
     Route: 048
     Dates: start: 20030711

REACTIONS (8)
  - DIARRHOEA [None]
  - PAIN [None]
  - PHOTOSENSITIVITY REACTION [None]
  - PRURITUS [None]
  - RASH [None]
  - SCLERAL DISORDER [None]
  - SKIN DISORDER [None]
  - TYPE 1 DIABETES MELLITUS [None]
